FAERS Safety Report 14029977 (Version 2)
Quarter: 2018Q2

REPORT INFORMATION
  Report Type: Report from Study
  Country: US (occurrence: BR)
  Receive Date: 20171002
  Receipt Date: 20180419
  Transmission Date: 20180711
  Serious: Yes (Life-Threatening, Other)
  Sender: FDA-Public Use
  Company Number: US-SUNOVION-2017SUN004291

PATIENT
  Sex: Female
  Weight: 56 kg

DRUGS (14)
  1. PREDNISONA [Concomitant]
     Active Substance: PREDNISONE
  2. INDACATEROL AND GLYCOPYRROLATE [Suspect]
     Active Substance: GLYCOPYRROLATE\INDACATEROL MALEATE
     Indication: EMPHYSEMA
     Dosage: UNK, QD
     Route: 055
     Dates: start: 2016
  3. BEROTEC [Suspect]
     Active Substance: FENOTEROL HYDROBROMIDE
     Indication: PRODUCT USED FOR UNKNOWN INDICATION
     Route: 048
  4. BAMIFIX [Concomitant]
     Active Substance: BAMIFYLLINE HYDROCHLORIDE
  5. VOLTAREN [Concomitant]
     Active Substance: DICLOFENAC SODIUM
  6. INDACATEROL AND GLYCOPYRROLATE [Suspect]
     Active Substance: GLYCOPYRROLATE\INDACATEROL MALEATE
     Dosage: 1 DF (110/50), QD
     Route: 055
     Dates: start: 201703
  7. AEROLIN [Concomitant]
     Active Substance: ALBUTEROL
  8. SEEBRI [Concomitant]
     Active Substance: GLYCOPYRRONIUM
  9. ALENIA [Concomitant]
     Active Substance: BUDESONIDE\FORMOTEROL FUMARATE
  10. CLENIL [Concomitant]
     Active Substance: BECLOMETHASONE DIPROPIONATE
  11. FINICORT [Concomitant]
  12. MONTELAIR [Concomitant]
     Active Substance: MONTELUKAST SODIUM
  13. INDACATEROL AND GLYCOPYRROLATE [Suspect]
     Active Substance: GLYCOPYRROLATE\INDACATEROL MALEATE
     Indication: CHRONIC OBSTRUCTIVE PULMONARY DISEASE
     Dosage: UNK, BID
     Route: 055
  14. RELVAR [Concomitant]
     Active Substance: FLUTICASONE FUROATE\VILANTEROL TRIFENATATE
     Dosage: 200/25 UG

REACTIONS (18)
  - Aphasia [Unknown]
  - Weight decreased [Unknown]
  - Tremor [Unknown]
  - Movement disorder [Unknown]
  - Inappropriate schedule of drug administration [Unknown]
  - Feeling abnormal [Unknown]
  - Decreased appetite [Unknown]
  - Pain [Unknown]
  - Drug prescribing error [Unknown]
  - Malaise [Unknown]
  - Body surface area decreased [Unknown]
  - Weight increased [Unknown]
  - Emphysema [Unknown]
  - Oxygen saturation decreased [Recovering/Resolving]
  - Head discomfort [Recovered/Resolved]
  - Muscular weakness [Unknown]
  - Dyspnoea [Unknown]
  - Fatigue [Unknown]
